FAERS Safety Report 10222311 (Version 1)
Quarter: 2014Q2

REPORT INFORMATION
  Report Type: Spontaneous
  Country: IT (occurrence: IT)
  Receive Date: 20140606
  Receipt Date: 20140606
  Transmission Date: 20141212
  Serious: Yes (Hospitalization)
  Sender: FDA-Public Use
  Company Number: IT-ASTRAZENECA-2014SE38435

PATIENT
  Age: 28410 Day
  Sex: Female

DRUGS (9)
  1. RATACAND (CANDESARTAN) [Suspect]
     Indication: ESSENTIAL HYPERTENSION
     Route: 048
  2. PROVISACOR (ROSUVASTATIN) [Suspect]
     Indication: HYPERCHOLESTEROLAEMIA
     Route: 048
  3. SELOKEN [Concomitant]
  4. PROCORALAN [Concomitant]
  5. MONOCINQUE [Concomitant]
  6. LERCADIP [Concomitant]
  7. LASIX [Concomitant]
  8. ESKIM [Concomitant]
  9. NEXIUM [Concomitant]

REACTIONS (2)
  - Renal failure [Recovering/Resolving]
  - Rhabdomyolysis [Recovering/Resolving]
